FAERS Safety Report 9113470 (Version 1)
Quarter: 2013Q1

REPORT INFORMATION
  Report Type: Report from Study
  Country: US (occurrence: US)
  Receive Date: 20130129
  Receipt Date: 20130129
  Transmission Date: 20140127
  Serious: No
  Sender: FDA-Public Use
  Company Number: US-ABBOTT-12P-163-0940006-00

PATIENT
  Age: 33 Year
  Sex: Male

DRUGS (3)
  1. HUMIRA 40 MG/0.8 ML PEN [Suspect]
     Indication: CROHN^S DISEASE
     Dates: start: 20120412, end: 20120523
  2. HUMIRA 40 MG/0.8 ML PEN [Suspect]
     Dates: start: 20120523
  3. PERCOCET [Concomitant]
     Indication: PAIN
     Dosage: 325MG, 4-5 TABLETS DAILY
     Route: 048

REACTIONS (1)
  - Pain [Not Recovered/Not Resolved]
